FAERS Safety Report 16744220 (Version 1)
Quarter: 2019Q3

REPORT INFORMATION
  Report Type: Spontaneous
  Country: FR (occurrence: FR)
  Receive Date: 20190827
  Receipt Date: 20190827
  Transmission Date: 20191005
  Serious: Yes (Other)
  Sender: FDA-Public Use
  Company Number: FR-ACCORD-152840

PATIENT
  Age: 15 Year
  Sex: Female

DRUGS (1)
  1. AMITRIPTYLINE [Suspect]
     Active Substance: AMITRIPTYLINE
     Indication: HEMIPLEGIC MIGRAINE
     Dosage: WITH DECREASING LEVELS

REACTIONS (1)
  - Feeling abnormal [Unknown]
